FAERS Safety Report 4823837-3 (Version None)
Quarter: 2005Q4

REPORT INFORMATION
  Report Type: 
  Country: None (occurrence: None)
  Receive Date: 20051109
  Receipt Date: 20051028
  Transmission Date: 20060501
  Serious: Yes (Hospitalization)
  Sender: FDA-Public Use
  Company Number: PHNU2005PL03615

PATIENT
  Age: 42 Year
  Sex: Female

DRUGS (5)
  1. NEOTIGASON [Suspect]
     Indication: PUSTULAR PSORIASIS
     Dosage: 10 MG, QD
  2. ENCORTON [Suspect]
     Dates: start: 20050821
  3. AUGMENTIN '125' [Suspect]
     Indication: PUSTULAR PSORIASIS
     Dates: start: 20050821
  4. ANTIINFLAMMATORY/ANTIRHEUMATIC NON-STEROIDS [Suspect]
     Indication: PUSTULAR PSORIASIS
     Dates: start: 20050821
  5. SANDIMMUNE [Suspect]
     Indication: PUSTULAR PSORIASIS
     Dosage: 100 MG, TID
     Route: 048
     Dates: start: 20050821

REACTIONS (2)
  - DRUG EXPOSURE DURING PREGNANCY [None]
  - INTRA-UTERINE DEATH [None]
